FAERS Safety Report 9438234 (Version 1)
Quarter: 2013Q3

REPORT INFORMATION
  Report Type: Spontaneous
  Country: US (occurrence: US)
  Receive Date: 20130802
  Receipt Date: 20130802
  Transmission Date: 20140515
  Serious: No
  Sender: FDA-Public Use
  Company Number: US-BRISTOL-MYERS SQUIBB COMPANY-17074790

PATIENT
  Age: 71 Year
  Sex: Male
  Weight: 83.9 kg

DRUGS (6)
  1. COUMADIN [Suspect]
     Indication: ATRIAL FIBRILLATION
     Dosage: 1DF: 5MG 6DAYS/WK?7.5MG FRIDAY/WK
     Route: 048
     Dates: start: 19970730
  2. SIMVASTATIN [Suspect]
  3. DIGOXIN [Concomitant]
     Dosage: 1DF= 0.25-UNITS NOS
  4. BISOPROLOL [Concomitant]
     Dosage: 1DF= 10-UNITS NOS
  5. ALLOPURINOL [Concomitant]
  6. CARDIZEM LA [Concomitant]

REACTIONS (4)
  - Hypoaesthesia [Unknown]
  - Varicose vein [Unknown]
  - Oedema peripheral [Unknown]
  - Erythema [Unknown]
